FAERS Safety Report 9517425 (Version 2)
Quarter: 2013Q4

REPORT INFORMATION
  Report Type: Report from Study
  Country: CN (occurrence: CN)
  Receive Date: 20130911
  Receipt Date: 20131028
  Transmission Date: 20140711
  Serious: Yes (Hospitalization, Other)
  Sender: FDA-Public Use
  Company Number: CN-GILEAD-2013-0082802

PATIENT
  Age: 35 Year
  Sex: Male

DRUGS (1)
  1. ADEFOVIR DIPIVOXIL [Suspect]
     Indication: CHRONIC HEPATITIS B
     Dosage: 10 MG, QD
     Route: 065

REACTIONS (7)
  - Osteoporosis [Unknown]
  - Gait disturbance [Unknown]
  - Vitamin D decreased [Unknown]
  - Renal tubular disorder [Unknown]
  - Bone pain [Unknown]
  - Hypophosphataemia [Unknown]
  - Osteomalacia [Unknown]
